FAERS Safety Report 5941825-0 (Version None)
Quarter: 2008Q4

REPORT INFORMATION
  Report Type: 
  Country: None (occurrence: None)
  Receive Date: 20081105
  Receipt Date: 20081104
  Transmission Date: 20090506
  Serious: Yes (Disabling)
  Sender: FDA-Public Use
  Company Number: DE-BRISTOL-MYERS SQUIBB COMPANY-14389183

PATIENT
  Age: 45 Year
  Sex: Male
  Weight: 89 kg

DRUGS (3)
  1. REYATAZ [Suspect]
     Indication: HIV INFECTION
     Route: 048
     Dates: start: 20080317
  2. NORVIR [Concomitant]
     Indication: METABOLIC SYNDROME
     Route: 048
     Dates: start: 20080317
  3. TRUVADA [Concomitant]
     Indication: METABOLIC SYNDROME
     Route: 048
     Dates: start: 20060601

REACTIONS (1)
  - OSTEONECROSIS [None]
